FAERS Safety Report 8860390 (Version 2)
Quarter: 2013Q2

REPORT INFORMATION
  Report Type: Spontaneous
  Country: US (occurrence: US)
  Receive Date: 20121025
  Receipt Date: 20130503
  Transmission Date: 20140414
  Serious: Yes (Other)
  Sender: FDA-Public Use
  Company Number: US-009507513-1210USA008778

PATIENT
  Age: 65 Year
  Sex: Female

DRUGS (2)
  1. CLARITIN [Suspect]
     Indication: PRODUCT USED FOR UNKNOWN INDICATION
  2. MULTIHANCE [Suspect]
     Indication: NUCLEAR MAGNETIC RESONANCE IMAGING
     Dosage: UNK
     Dates: start: 20121024

REACTIONS (8)
  - Upper limb fracture [Unknown]
  - Angioedema [Unknown]
  - Blood glucose increased [Unknown]
  - Thermal burn [Unknown]
  - Pain in extremity [Unknown]
  - Swelling [Unknown]
  - Drug hypersensitivity [Unknown]
  - Erythema [Unknown]
